FAERS Safety Report 18272342 (Version 36)
Quarter: 2025Q3

REPORT INFORMATION
  Report Type: Report from Study
  Country: US (occurrence: US)
  Receive Date: 20200916
  Receipt Date: 20250707
  Transmission Date: 20251020
  Serious: Yes (Hospitalization, Other)
  Sender: TAKEDA
  Company Number: US-SHIRE-US202029762

PATIENT
  Age: 67 Year
  Sex: Female
  Weight: 98 kg

DRUGS (49)
  1. HUMAN IMMUNOGLOBULIN G [Suspect]
     Active Substance: HUMAN IMMUNOGLOBULIN G
     Indication: Immunodeficiency common variable
     Dosage: 11 GRAM, 1/WEEK
  2. LYRICA [Concomitant]
     Active Substance: PREGABALIN
  3. METHOCARBAMOL [Concomitant]
     Active Substance: METHOCARBAMOL
  4. BREO ELLIPTA [Concomitant]
     Active Substance: FLUTICASONE FUROATE\VILANTEROL TRIFENATATE
  5. VITAMIN C [Concomitant]
     Active Substance: ASCORBIC ACID
  6. PREDNISONE [Concomitant]
     Active Substance: PREDNISONE
  7. AZITHROMYCIN [Concomitant]
     Active Substance: AZITHROMYCIN
  8. FLONASE ALLERGY RELIEF [Concomitant]
     Active Substance: FLUTICASONE PROPIONATE
  9. FLUVOXAMINE MALEATE [Concomitant]
     Active Substance: FLUVOXAMINE MALEATE
  10. ZYPREXA [Concomitant]
     Active Substance: OLANZAPINE
  11. SINGULAIR [Concomitant]
     Active Substance: MONTELUKAST SODIUM
  12. FOLIC ACID [Concomitant]
     Active Substance: FOLIC ACID
  13. CLINDAMYCIN [Concomitant]
     Active Substance: CLINDAMYCIN
  14. CALCIUM [Concomitant]
     Active Substance: CALCIUM
  15. XYZAL [Concomitant]
     Active Substance: LEVOCETIRIZINE DIHYDROCHLORIDE
  16. ACETAMINOPHEN [Concomitant]
     Active Substance: ACETAMINOPHEN
  17. DIPHENHYDRAMINE [Concomitant]
     Active Substance: DIPHENHYDRAMINE
  18. AZELASTINE [Concomitant]
     Active Substance: AZELASTINE
  19. MINERALS\VITAMINS [Concomitant]
     Active Substance: MINERALS\VITAMINS
  20. CRESTOR [Concomitant]
     Active Substance: ROSUVASTATIN CALCIUM
  21. BACTRIM [Concomitant]
     Active Substance: SULFAMETHOXAZOLE\TRIMETHOPRIM
  22. HYDROCHLOROTHIAZIDE\LOSARTAN POTASSIUM [Concomitant]
     Active Substance: HYDROCHLOROTHIAZIDE\LOSARTAN POTASSIUM
  23. PROAIR HFA [Concomitant]
     Active Substance: ALBUTEROL SULFATE
  24. VALACYCLOVIR [Concomitant]
     Active Substance: VALACYCLOVIR HYDROCHLORIDE
  25. FERROUS SULFATE [Concomitant]
     Active Substance: FERROUS SULFATE
  26. CHLORZOXAZONE [Concomitant]
     Active Substance: CHLORZOXAZONE
  27. LYSINE [Concomitant]
     Active Substance: LYSINE
  28. LIDOCAINE [Concomitant]
     Active Substance: LIDOCAINE
  29. CYMBALTA [Concomitant]
     Active Substance: DULOXETINE HYDROCHLORIDE
  30. GLUCOTROL XL [Concomitant]
     Active Substance: GLIPIZIDE
  31. FLUCONAZOLE [Concomitant]
     Active Substance: FLUCONAZOLE
  32. EPINEPHRINE [Concomitant]
     Active Substance: EPINEPHRINE
  33. VITAMIN D2 [Concomitant]
     Active Substance: ERGOCALCIFEROL
  34. CLONAZEPAM [Concomitant]
     Active Substance: CLONAZEPAM
  35. METFORMIN [Concomitant]
     Active Substance: METFORMIN HYDROCHLORIDE
  36. VITAMIN B12 [Concomitant]
     Active Substance: CYANOCOBALAMIN
  37. PROAIR HFA [Concomitant]
     Active Substance: ALBUTEROL SULFATE
  38. PANTOPRAZOLE SODIUM [Concomitant]
     Active Substance: PANTOPRAZOLE SODIUM
  39. METFORMIN HYDROCHLORIDE [Concomitant]
     Active Substance: METFORMIN HYDROCHLORIDE
  40. CLINDAMYCIN HYDROCHLORIDE [Concomitant]
     Active Substance: CLINDAMYCIN HYDROCHLORIDE
  41. VITAMIN D [Concomitant]
     Active Substance: VITAMIN D NOS
  42. AZELASTINE HYDROCHLORIDE\FLUTICASONE PROPIONATE [Concomitant]
     Active Substance: AZELASTINE HYDROCHLORIDE\FLUTICASONE PROPIONATE
  43. DOXYCYCLINE HYCLATE [Concomitant]
     Active Substance: DOXYCYCLINE HYCLATE
  44. VITAMIN B [Concomitant]
     Active Substance: VITAMIN B
  45. ROBAXIN [Concomitant]
     Active Substance: METHOCARBAMOL
  46. LOSARTAN POTASSIUM [Concomitant]
     Active Substance: LOSARTAN POTASSIUM
  47. DIPHENHYDRAMINE HYDROCHLORIDE [Concomitant]
     Active Substance: DIPHENHYDRAMINE HYDROCHLORIDE
  48. METHOCARBAMOL [Concomitant]
     Active Substance: METHOCARBAMOL
  49. AZITHROMYCIN DIHYDROCHLORIDE [Concomitant]
     Active Substance: AZITHROMYCIN DIHYDROCHLORIDE

REACTIONS (42)
  - Systemic lupus erythematosus [Unknown]
  - Intervertebral disc degeneration [Unknown]
  - Nerve compression [Unknown]
  - Chronic kidney disease [Unknown]
  - Gastric ulcer [Unknown]
  - Asthma [Unknown]
  - Illness [Unknown]
  - Foot fracture [Not Recovered/Not Resolved]
  - Full blood count decreased [Unknown]
  - Wrist fracture [Unknown]
  - Arthropod bite [Unknown]
  - Osteopenia [Unknown]
  - Tooth disorder [Unknown]
  - Sinus disorder [Unknown]
  - Tooth abscess [Unknown]
  - Infusion site irritation [Unknown]
  - Infection [Unknown]
  - COVID-19 [Unknown]
  - Localised infection [Unknown]
  - Ear infection [Unknown]
  - Cellulitis [Unknown]
  - Bronchitis [Not Recovered/Not Resolved]
  - Sinusitis bacterial [Unknown]
  - Seasonal allergy [Unknown]
  - Gout [Unknown]
  - Incorrect drug administration rate [Unknown]
  - Product dose omission issue [Unknown]
  - Dry eye [Unknown]
  - Upper respiratory tract infection [Recovered/Resolved]
  - Sinusitis [Unknown]
  - Infusion site rash [Recovering/Resolving]
  - Rash pruritic [Not Recovered/Not Resolved]
  - Infusion site warmth [Unknown]
  - Infusion site urticaria [Unknown]
  - Infusion site erythema [Unknown]
  - Infusion site pruritus [Unknown]
  - Infusion site swelling [Unknown]
  - Erythema [Unknown]
  - Infusion site pain [Unknown]
  - Pruritus [Not Recovered/Not Resolved]
  - Dizziness [Recovered/Resolved]
  - Nausea [Recovered/Resolved]

NARRATIVE: CASE EVENT DATE: 20210512
